FAERS Safety Report 5663399-4 (Version None)
Quarter: 2008Q1

REPORT INFORMATION
  Report Type: 
  Country: None (occurrence: None)
  Receive Date: 20080313
  Receipt Date: 20080307
  Transmission Date: 20080703
  Serious: Yes (Other)
  Sender: FDA-Public Use
  Company Number: GB-ALLERGAN-0802800US

PATIENT
  Sex: Female

DRUGS (1)
  1. BOTOX 100 UNITS [Suspect]
     Indication: CEREBRAL PALSY
     Dosage: 30 UNITS, SINGLE
     Route: 030

REACTIONS (1)
  - JOINT RANGE OF MOTION DECREASED [None]
